FAERS Safety Report 17034592 (Version 1)
Quarter: 2019Q4

REPORT INFORMATION
  Report Type: Spontaneous
  Country: HU (occurrence: HU)
  Receive Date: 20191115
  Receipt Date: 20191115
  Transmission Date: 20200122
  Serious: Yes (Other)
  Sender: FDA-Public Use
  Company Number: HU-ABBVIE-19P-076-2998407-00

PATIENT
  Age: 76 Year
  Sex: Male

DRUGS (3)
  1. PAZOPANIB [Suspect]
     Active Substance: PAZOPANIB
     Dosage: 800 MILLIGRAM, QD
     Route: 065
     Dates: start: 20170908
  2. PAZOPANIB [Suspect]
     Active Substance: PAZOPANIB
     Indication: PRODUCT USED FOR UNKNOWN INDICATION
     Dosage: 600 MILLIGRAM
     Route: 065
  3. LEUPRORELIN [Suspect]
     Active Substance: LEUPROLIDE ACETATE
     Indication: PRODUCT USED FOR UNKNOWN INDICATION
     Dosage: UNK
     Route: 065
     Dates: start: 20120914, end: 201812

REACTIONS (28)
  - Metastases to lymph nodes [Unknown]
  - Cardiac ventricular scarring [Unknown]
  - Arteriosclerosis [Unknown]
  - Rib fracture [Unknown]
  - Ventricular extrasystoles [Unknown]
  - Metastases to lung [Unknown]
  - Cardiomegaly [Unknown]
  - Decreased appetite [Unknown]
  - Ventricular tachycardia [Unknown]
  - Renal adenoma [Unknown]
  - Nausea [Unknown]
  - Metastatic renal cell carcinoma [Unknown]
  - Metastases to bone [Unknown]
  - Metastases to chest wall [Unknown]
  - Diarrhoea [Unknown]
  - Metastases to adrenals [Unknown]
  - Prostate cancer [Unknown]
  - Ventricular dyskinesia [Unknown]
  - Hepatic steatosis [Unknown]
  - Renal cyst [Unknown]
  - Ventricular hypokinesia [Unknown]
  - Osteoarthritis [Unknown]
  - Pulmonary mass [Unknown]
  - Hyperadrenocorticism [Unknown]
  - Ejection fraction decreased [Unknown]
  - Adrenal adenoma [Unknown]
  - Hypothyroidism [Unknown]
  - Fatigue [Unknown]

NARRATIVE: CASE EVENT DATE: 2012
